FAERS Safety Report 18217161 (Version 2)
Quarter: 2020Q4

REPORT INFORMATION
  Report Type: Spontaneous
  Country: US (occurrence: US)
  Receive Date: 20200901
  Receipt Date: 20201002
  Transmission Date: 20210113
  Serious: No
  Sender: FDA-Public Use
  Company Number: US-PFIZER INC-2020335474

PATIENT
  Age: 72 Year
  Sex: Female

DRUGS (3)
  1. ENBREL [Concomitant]
     Active Substance: ETANERCEPT
     Dosage: UNK
  2. XELJANZ [Suspect]
     Active Substance: TOFACITINIB CITRATE
     Indication: RHEUMATOID ARTHRITIS
     Dosage: 5 MG, 2X/DAY
     Route: 048
     Dates: start: 2015
  3. METHOTREXATE INJECTION [Concomitant]
     Active Substance: METHOTREXATE
     Dosage: UNK

REACTIONS (8)
  - Malaise [Unknown]
  - Asthenia [Unknown]
  - Mobility decreased [Unknown]
  - Cystitis [Unknown]
  - Therapeutic response unexpected [Unknown]
  - Tremor [Unknown]
  - Product dose omission in error [Unknown]
  - Pain [Unknown]

NARRATIVE: CASE EVENT DATE: 202006
